FAERS Safety Report 6409184-7 (Version None)
Quarter: 2009Q4

REPORT INFORMATION
  Report Type: 
  Country: None (occurrence: None)
  Receive Date: 20091021
  Receipt Date: 20091013
  Transmission Date: 20100525
  Serious: Yes (Other)
  Sender: FDA-Public Use
  Company Number: PHHY2009IE36152

PATIENT
  Sex: Male

DRUGS (1)
  1. CLOZARIL [Suspect]
     Indication: SCHIZOPHRENIA
     Dosage: 500 MG DAILY
     Route: 048
     Dates: start: 19980429, end: 20090825

REACTIONS (6)
  - AGRANULOCYTOSIS [None]
  - BODY TEMPERATURE INCREASED [None]
  - EAR INFECTION [None]
  - MALAISE [None]
  - MENTAL DISORDER [None]
  - WHITE BLOOD CELL COUNT DECREASED [None]
